FAERS Safety Report 14213884 (Version 2)
Quarter: 2017Q4

REPORT INFORMATION
  Report Type: Report from Study
  Country: US (occurrence: US)
  Receive Date: 20171122
  Receipt Date: 20171130
  Transmission Date: 20180321
  Serious: No
  Sender: FDA-Public Use
  Company Number: US-009507513-0707USA01976

PATIENT
  Sex: Female

DRUGS (1)
  1. MAXALT [Suspect]
     Active Substance: RIZATRIPTAN BENZOATE
     Dosage: 10 MG, PRN
     Route: 048
     Dates: start: 2004

REACTIONS (4)
  - Migraine [Unknown]
  - Drug ineffective [Unknown]
  - Drug dose omission [Unknown]
  - Product storage error [Unknown]
